FAERS Safety Report 19185634 (Version 1)
Quarter: 2021Q2

REPORT INFORMATION
  Report Type: Spontaneous
  Country: HR (occurrence: HR)
  Receive Date: 20210427
  Receipt Date: 20210427
  Transmission Date: 20210717
  Serious: Yes (Hospitalization, Other)
  Sender: FDA-Public Use
  Company Number: HR-PFIZER INC-2021410937

PATIENT
  Sex: Male

DRUGS (4)
  1. LORLATINIB [Suspect]
     Active Substance: LORLATINIB
     Dosage: 50 MG
     Route: 048
  2. LORLATINIB [Suspect]
     Active Substance: LORLATINIB
     Dosage: 100 MG
     Route: 048
     Dates: start: 202010
  3. LORLATINIB [Suspect]
     Active Substance: LORLATINIB
     Dosage: 75 MG
     Route: 048
  4. FUROSEMIDE. [Concomitant]
     Active Substance: FUROSEMIDE
     Dosage: UNK

REACTIONS (11)
  - Oedema peripheral [Unknown]
  - Blood creatinine increased [Unknown]
  - COVID-19 [Unknown]
  - Hypercholesterolaemia [Unknown]
  - Wheezing [Unknown]
  - Hyperkalaemia [Unknown]
  - Cough [Unknown]
  - Pericardial effusion [Unknown]
  - Creatinine renal clearance decreased [Unknown]
  - Hyperlipidaemia [Unknown]
  - Dyspnoea [Unknown]

NARRATIVE: CASE EVENT DATE: 202101
